FAERS Safety Report 5226768-2 (Version None)
Quarter: 2007Q1

REPORT INFORMATION
  Report Type: 
  Country: None (occurrence: None)
  Receive Date: 20070130
  Receipt Date: 20070119
  Transmission Date: 20070707
  Serious: Yes (Other)
  Sender: FDA-Public Use
  Company Number: 6029289

PATIENT

DRUGS (1)
  1. CARDICOR (TABLET) (BISOPROLOL FUMARATE) [Suspect]
     Dosage: ORAL
     Route: 048

REACTIONS (1)
  - RETROPERITONEAL FIBROSIS [None]
